FAERS Safety Report 15286033 (Version 1)
Quarter: 2018Q3

REPORT INFORMATION
  Report Type: Spontaneous
  Country: AR (occurrence: AR)
  Receive Date: 20180816
  Receipt Date: 20180816
  Transmission Date: 20181010
  Serious: Yes (Other)
  Sender: FDA-Public Use
  Company Number: AR-JNJFOC-20180816675

PATIENT
  Sex: Female

DRUGS (4)
  1. XARELTO [Suspect]
     Active Substance: RIVAROXABAN
     Indication: ATRIAL FIBRILLATION
     Route: 048
  2. ATENOLOL. [Concomitant]
     Active Substance: ATENOLOL
     Indication: ARRHYTHMIA
     Route: 065
  3. BAYASPIRINA [Concomitant]
     Active Substance: ASPIRIN
     Indication: PAIN
     Route: 065
  4. TRAPAX [Concomitant]
     Active Substance: LORAZEPAM
     Route: 065

REACTIONS (2)
  - Fall [Unknown]
  - Traumatic fracture [Unknown]

NARRATIVE: CASE EVENT DATE: 201807
